FAERS Safety Report 21898273 (Version 1)
Quarter: 2023Q1

REPORT INFORMATION
  Report Type: Spontaneous
  Country: US (occurrence: None)
  Receive Date: 20230121
  Receipt Date: 20230121
  Transmission Date: 20230418
  Serious: Yes (Hospitalization)
  Sender: FDA-Public Use
  Company Number: None

PATIENT
  Age: 3 Year
  Sex: Male
  Weight: 13.7 kg

DRUGS (3)
  1. CARBOPLATIN [Suspect]
     Active Substance: CARBOPLATIN
     Dates: end: 20230102
  2. ETOPOSIDE [Suspect]
     Active Substance: ETOPOSIDE
     Dates: end: 20230102
  3. MELPHALAN [Suspect]
     Active Substance: MELPHALAN
     Dosage: OTHER QUANTITY : 106.2MG;?
     Dates: end: 20230101

REACTIONS (7)
  - Stem cell transplant [None]
  - Pyrexia [None]
  - Tachycardia [None]
  - Hypoxia [None]
  - Hypotension [None]
  - Septic shock [None]
  - Streptococcus test positive [None]

NARRATIVE: CASE EVENT DATE: 20230112
